FAERS Safety Report 24671779 (Version 1)
Quarter: 2024Q4

REPORT INFORMATION
  Report Type: Spontaneous
  Country: GB (occurrence: GB)
  Receive Date: 20241127
  Receipt Date: 20241127
  Transmission Date: 20250115
  Serious: Yes (Other)
  Sender: BAYER HEALTHCARE PHARMACEUTICALS INC.
  Company Number: GB-MHRA-WEBRADR-202411171252435760-ZGYKN

PATIENT
  Age: 72 Year
  Sex: Male
  Weight: 97 kg

DRUGS (7)
  1. CIPROFLOXACIN [Suspect]
     Active Substance: CIPROFLOXACIN
     Indication: Urinary tract infection
     Dosage: 500 MG, BID
     Route: 048
     Dates: start: 20241109, end: 20241117
  2. APIXABAN [Concomitant]
     Active Substance: APIXABAN
     Indication: Hypertension
  3. APIXABAN [Concomitant]
     Active Substance: APIXABAN
     Indication: Atrial fibrillation
  4. BISOPROLOL [Concomitant]
     Active Substance: BISOPROLOL
  5. FLUOXETINE [Concomitant]
     Active Substance: FLUOXETINE HYDROCHLORIDE
  6. ATORVASTATIN [Concomitant]
     Active Substance: ATORVASTATIN
  7. CITALOPRAM [Concomitant]
     Active Substance: CITALOPRAM

REACTIONS (6)
  - Muscle rupture [Not Recovered/Not Resolved]
  - Muscle strain [None]
  - Contusion [Not Recovered/Not Resolved]
  - Myalgia [Not Recovered/Not Resolved]
  - Gait inability [Not Recovered/Not Resolved]
  - Haematoma [None]

NARRATIVE: CASE EVENT DATE: 20241111
